FAERS Safety Report 6006499-1 (Version None)
Quarter: 2008Q4

REPORT INFORMATION
  Report Type: 
  Country: None (occurrence: None)
  Receive Date: 20081217
  Receipt Date: 20081205
  Transmission Date: 20090506
  Serious: Yes (Other)
  Sender: FDA-Public Use
  Company Number: AU-AMGEN-KDL323083

PATIENT
  Age: 27 Year

DRUGS (4)
  1. NEULASTA [Suspect]
     Indication: CHEMOTHERAPY
     Dates: start: 20081121
  2. IDARUBICIN HCL [Concomitant]
     Dates: start: 20081111, end: 20081120
  3. CYTARABINE [Concomitant]
     Dates: start: 20081111, end: 20081120
  4. ETOPOSIDE [Concomitant]
     Dates: start: 20081111, end: 20081120

REACTIONS (2)
  - FUNGAL INFECTION [None]
  - NEUTROPENIA [None]
